FAERS Safety Report 8573842-9 (Version None)
Quarter: 2012Q3

REPORT INFORMATION
  Report Type: 
  Country: None (occurrence: None)
  Receive Date: 20120806
  Receipt Date: 20110927
  Transmission Date: 20120928
  Serious: No
  Sender: FDA-Public Use
  Company Number: US-GLAXOSMITHKLINE-A0946192A

PATIENT
  Age: 68 Year
  Sex: Male

DRUGS (5)
  1. SPIRIVA [Concomitant]
  2. TRIAMTERENE [Concomitant]
  3. BLOOD PRESSURE MEDICATION [Concomitant]
  4. ATENOLOL [Concomitant]
  5. FLUTICASONE PROPIONATE [Suspect]
     Dosage: 2PUFF TWICE PER DAY
     Route: 055
     Dates: start: 20090101

REACTIONS (1)
  - APHONIA [None]
